FAERS Safety Report 6511679-2 (Version None)
Quarter: 2009Q4

REPORT INFORMATION
  Report Type: 
  Country: None (occurrence: None)
  Receive Date: 20091222
  Receipt Date: 20090508
  Transmission Date: 20100525
  Serious: No
  Sender: FDA-Public Use
  Company Number: US-ASTRAZENECA-2009UW11886

PATIENT
  Age: 74 Year
  Sex: Female

DRUGS (6)
  1. CRESTOR [Suspect]
     Route: 048
  2. CRESTOR [Suspect]
     Route: 048
  3. BABY ASPIRIN [Concomitant]
  4. DIAZIDE [Concomitant]
     Indication: HYPERTENSION
  5. EXTRA STRENGTH TYLENOL [Concomitant]
  6. BENICAR [Concomitant]
     Indication: HYPERTENSION

REACTIONS (2)
  - BLOOD CHOLESTEROL INCREASED [None]
  - SOMNOLENCE [None]
